FAERS Safety Report 23956267 (Version 1)
Quarter: 2024Q2

REPORT INFORMATION
  Report Type: Spontaneous
  Country: US (occurrence: US)
  Receive Date: 20240610
  Receipt Date: 20240610
  Transmission Date: 20240716
  Serious: No
  Sender: FDA-Public Use
  Company Number: US-SA-SAC20240604000749

PATIENT
  Age: 87 Year
  Sex: Female

DRUGS (2)
  1. ENJAYMO [Suspect]
     Active Substance: SUTIMLIMAB-JOME
     Indication: Cold type haemolytic anaemia
     Dosage: UNDILUTED IV INFUSION, ADMINISTERED OVER 2 HOURS
     Route: 042
     Dates: start: 20240429, end: 2024
  2. ENJAYMO [Suspect]
     Active Substance: SUTIMLIMAB-JOME
     Dosage: UNDILUTED IV INFUSION, ADMINISTERED OVER 2 HOURS
     Route: 042
     Dates: start: 2024

REACTIONS (4)
  - Infusion related reaction [Unknown]
  - Infusion related reaction [Recovered/Resolved]
  - Hypertension [Recovered/Resolved]
  - Arthralgia [Recovered/Resolved]

NARRATIVE: CASE EVENT DATE: 20240101
